FAERS Safety Report 23768226 (Version 2)
Quarter: 2024Q2

REPORT INFORMATION
  Report Type: Other
  Country: JP (occurrence: None)
  Receive Date: 20240422
  Receipt Date: 20240531
  Transmission Date: 20240716
  Serious: Yes (Other)
  Sender: FDA-Public Use
  Company Number: JP-ROCHE-3545922

PATIENT

DRUGS (2)
  1. RITUXIMAB [Suspect]
     Active Substance: RITUXIMAB
     Indication: Waldenstrom^s macroglobulinaemia
     Dosage: TOTAL 8 INFUSIONS
     Route: 042
  2. IBRUTINIB [Suspect]
     Active Substance: IBRUTINIB
     Indication: Waldenstrom^s macroglobulinaemia
     Route: 048

REACTIONS (37)
  - Cellulitis [Unknown]
  - Escherichia bacteraemia [Unknown]
  - Arthritis bacterial [Unknown]
  - Hypophagia [Unknown]
  - Cystitis haemorrhagic [Unknown]
  - Pneumonia bacterial [Unknown]
  - COVID-19 [Unknown]
  - Neutrophil count decreased [Unknown]
  - Hypertension [Unknown]
  - Pyrexia [Unknown]
  - Lymphocyte count decreased [Unknown]
  - Dehydration [Unknown]
  - Prostatitis [Unknown]
  - Anaemia [Unknown]
  - Rash [Unknown]
  - Atrial fibrillation [Unknown]
  - Contusion [Unknown]
  - Nasopharyngitis [Unknown]
  - Erythema [Unknown]
  - Pruritus [Unknown]
  - Abdominal pain upper [Unknown]
  - Diarrhoea [Unknown]
  - Platelet count decreased [Unknown]
  - White blood cell count decreased [Unknown]
  - Paronychia [Unknown]
  - Viral infection [Unknown]
  - Abdominal discomfort [Unknown]
  - Constipation [Unknown]
  - Mouth haemorrhage [Unknown]
  - Aspartate aminotransferase increased [Unknown]
  - Arthralgia [Unknown]
  - Back pain [Unknown]
  - Oedema peripheral [Unknown]
  - Palpitations [Unknown]
  - Oropharyngeal pain [Unknown]
  - Headache [Unknown]
  - Dry eye [Unknown]
